FAERS Safety Report 4663723-5 (Version None)
Quarter: 2005Q2

REPORT INFORMATION
  Report Type: 
  Country: None (occurrence: None)
  Receive Date: 20050516
  Receipt Date: 20050504
  Transmission Date: 20051028
  Serious: Yes (Hospitalization, Disabling, Other)
  Sender: FDA-Public Use
  Company Number: 2004117393

PATIENT
  Age: 33 Year
  Sex: Male

DRUGS (4)
  1. NEURONTIN [Suspect]
     Indication: DEPRESSION
     Dosage: 900 MG (300 MG, 3 IN 1 D)
     Dates: end: 20010910
  2. TRAZODONE HCL [Concomitant]
  3. MIRTAZAPINE [Concomitant]
  4. NALTREXONE HCL [Concomitant]

REACTIONS (15)
  - ALCOHOL USE [None]
  - ANXIETY [None]
  - CONDITION AGGRAVATED [None]
  - DEPRESSION [None]
  - DRUG INEFFECTIVE [None]
  - DYSTHYMIC DISORDER [None]
  - FACIAL BONES FRACTURE [None]
  - GUN SHOT WOUND [None]
  - INSOMNIA [None]
  - IRRITABILITY [None]
  - OVERDOSE [None]
  - POISONING [None]
  - SOFT TISSUE INJURY [None]
  - STRESS [None]
  - SUICIDE ATTEMPT [None]
